FAERS Safety Report 12686913 (Version 1)
Quarter: 2016Q3

REPORT INFORMATION
  Report Type: Spontaneous
  Country: US (occurrence: US)
  Receive Date: 20160825
  Receipt Date: 20160825
  Transmission Date: 20161109
  Serious: No
  Sender: FDA-Public Use
  Company Number: US-JAZZ-2016-US-007103

PATIENT
  Age: 41 Year
  Sex: Male

DRUGS (19)
  1. DEXTROSTAT [Concomitant]
     Active Substance: DEXTROAMPHETAMINE SULFATE
  2. FLAXSEED [Concomitant]
     Active Substance: FLAX SEED
  3. NOVOLOG [Concomitant]
     Active Substance: INSULIN ASPART
  4. XYREM [Suspect]
     Active Substance: SODIUM OXYBATE
     Dosage: 3.75 G, BID
     Route: 048
     Dates: start: 201202
  5. LOVASTATIN. [Concomitant]
     Active Substance: LOVASTATIN
  6. CYMBALTA [Concomitant]
     Active Substance: DULOXETINE HYDROCHLORIDE
  7. IBUPROFEN. [Concomitant]
     Active Substance: IBUPROFEN
  8. OMEPRAZOLE. [Concomitant]
     Active Substance: OMEPRAZOLE
  9. PROAIR HFA [Concomitant]
     Active Substance: ALBUTEROL SULFATE
  10. XYREM [Suspect]
     Active Substance: SODIUM OXYBATE
     Indication: NARCOLEPSY
     Dosage: 2.25 G, BID
     Route: 048
     Dates: start: 201105, end: 201109
  11. XYREM [Suspect]
     Active Substance: SODIUM OXYBATE
     Dosage: 3 G, BID
     Route: 048
     Dates: start: 201109, end: 201202
  12. ADDERALL [Concomitant]
     Active Substance: AMPHETAMINE ASPARTATE\AMPHETAMINE SULFATE\DEXTROAMPHETAMINE SACCHARATE\DEXTROAMPHETAMINE SULFATE
  13. LANTUS [Concomitant]
     Active Substance: INSULIN GLARGINE
  14. FISH OIL CONCENTRATE [Concomitant]
  15. MULTIVITAMINS WITH IRON [Concomitant]
     Active Substance: IRON\VITAMINS
  16. REGLAN [Concomitant]
     Active Substance: METOCLOPRAMIDE HYDROCHLORIDE
  17. VITAMIN D [Concomitant]
     Active Substance: CHOLECALCIFEROL
  18. METFORMIN HCL [Concomitant]
     Active Substance: METFORMIN HYDROCHLORIDE
  19. LISINOPRIL. [Concomitant]
     Active Substance: LISINOPRIL

REACTIONS (1)
  - Vestibular migraine [Unknown]

NARRATIVE: CASE EVENT DATE: 20160608
